FAERS Safety Report 24447087 (Version 1)
Quarter: 2024Q4

REPORT INFORMATION
  Report Type: Spontaneous
  Country: CN (occurrence: CN)
  Receive Date: 20241016
  Receipt Date: 20241016
  Transmission Date: 20250114
  Serious: Yes (Other)
  Sender: SANDOZ
  Company Number: None

PATIENT
  Age: 85 Year
  Sex: Male
  Weight: 50 kg

DRUGS (1)
  1. ZOLEDRONIC ACID [Suspect]
     Active Substance: ZOLEDRONIC ACID
     Indication: Prostate cancer
     Dosage: 5 MG, QD
     Route: 041
     Dates: start: 20220101, end: 20240806

REACTIONS (1)
  - Temporomandibular pain and dysfunction syndrome [Recovering/Resolving]

NARRATIVE: CASE EVENT DATE: 20221006
